FAERS Safety Report 6809543-4 (Version None)
Quarter: 2010Q2

REPORT INFORMATION
  Report Type: 
  Country: None (occurrence: None)
  Receive Date: 20100630
  Receipt Date: 20100623
  Transmission Date: 20101027
  Serious: Yes (Death)
  Sender: FDA-Public Use
  Company Number: PHHY2010EC41839

PATIENT
  Age: 79 Year
  Sex: Male

DRUGS (1)
  1. DIOVAN AMLO [Suspect]
     Indication: HYPERTENSION
     Dosage: 80/5 MG
     Route: 048
     Dates: start: 20080101

REACTIONS (4)
  - BRAIN INJURY [None]
  - CARDIAC ARREST [None]
  - HAEMORRHAGE [None]
  - INJURY [None]
